FAERS Safety Report 6023762-9 (Version None)
Quarter: 2008Q4

REPORT INFORMATION
  Report Type: 
  Country: None (occurrence: None)
  Receive Date: 20081223
  Receipt Date: 20081216
  Transmission Date: 20090506
  Serious: Yes (Death)
  Sender: FDA-Public Use
  Company Number: 2008-04731

PATIENT
  Age: 82 Year
  Sex: Female
  Weight: 44 kg

DRUGS (2)
  1. VELCADE [Suspect]
     Indication: MULTIPLE MYELOMA
     Dosage: INTRAVENOUS
     Route: 042
     Dates: start: 20081203, end: 20081210
  2. DEXAMETHASONE TAB [Concomitant]

REACTIONS (1)
  - DISEASE PROGRESSION [None]
